FAERS Safety Report 5309117-0 (Version None)
Quarter: 2007Q2

REPORT INFORMATION
  Report Type: 
  Country: None (occurrence: None)
  Receive Date: 20070420
  Receipt Date: 20070412
  Transmission Date: 20071010
  Serious: Yes (Hospitalization)
  Sender: FDA-Public Use
  Company Number: 2007SP005096

PATIENT
  Sex: Female

DRUGS (1)
  1. ASMANEX TWISTHALER [Suspect]
     Indication: DRUG USE FOR UNKNOWN INDICATION
     Dosage: 1 DF; QD; PO
     Route: 048
     Dates: start: 20061001

REACTIONS (3)
  - ILL-DEFINED DISORDER [None]
  - MALAISE [None]
  - UNEVALUABLE EVENT [None]
